FAERS Safety Report 6335323-2 (Version None)
Quarter: 2009Q3

REPORT INFORMATION
  Report Type: 
  Country: None (occurrence: None)
  Receive Date: 20090831
  Receipt Date: 20090818
  Transmission Date: 20100115
  Serious: Yes (Hospitalization, Disabling, Other)
  Sender: FDA-Public Use
  Company Number: US-TYCO HEALTHCARE/MALLINCKRODT-T200800847

PATIENT
  Sex: Female

DRUGS (11)
  1. OPTIMARK [Suspect]
     Indication: ANGIOGRAM
     Dosage: UNK, SINGLE
     Route: 042
     Dates: start: 20050408, end: 20050408
  2. GADOLINIUM [Suspect]
     Indication: ANGIOGRAM
     Dosage: UNK
     Dates: start: 20050408, end: 20050408
  3. AVANDIA                            /01445801/ [Concomitant]
     Dosage: 4 MG, QD
  4. AMARYL [Concomitant]
     Dosage: 2 MG, QD
  5. TARKA                              /01323401/ [Concomitant]
     Dosage: 2/180 MG IN AM
  6. MINOXIDIL [Concomitant]
     Dosage: 10 MG, BID
  7. TOPROL-XL [Concomitant]
     Dosage: 100 MG, QD
  8. LASIX [Concomitant]
     Dosage: 80 MG, BID
  9. ALDACTONE [Concomitant]
     Dosage: 25 MG, QD
  10. POTASSIUM CHLORIDE [Concomitant]
     Dosage: 10 MEQ, BID
  11. AVAPRO [Concomitant]
     Dosage: 300 MG, QD

REACTIONS (17)
  - ACANTHOSIS NIGRICANS [None]
  - ANAEMIA [None]
  - BACTERAEMIA [None]
  - CELLULITIS [None]
  - CONSTIPATION [None]
  - DEEP VEIN THROMBOSIS [None]
  - FALL [None]
  - HYPOGLYCAEMIA [None]
  - INFECTION [None]
  - NEPHROGENIC SYSTEMIC FIBROSIS [None]
  - OFF LABEL USE [None]
  - RENAL IMPAIRMENT [None]
  - SEPSIS [None]
  - SMEAR CERVIX ABNORMAL [None]
  - STEAL SYNDROME [None]
  - URINARY TRACT INFECTION [None]
  - UTERINE LEIOMYOMA [None]
